FAERS Safety Report 5402010-4 (Version None)
Quarter: 2007Q3

REPORT INFORMATION
  Report Type: 
  Country: None (occurrence: None)
  Receive Date: 20070726
  Receipt Date: 20070716
  Transmission Date: 20080115
  Serious: Yes (Hospitalization)
  Sender: FDA-Public Use
  Company Number: B0480102A

PATIENT
  Age: 55 Year
  Sex: Male

DRUGS (4)
  1. ACYCLOVIR [Suspect]
     Indication: NON-HODGKIN'S LYMPHOMA
  2. CO-TRIMOXAZOLE (FORMULATION UNKNOWN) (GENERIC) (SULFAMETHOXAZOLE/TRIME [Suspect]
     Indication: NON-HODGKIN'S LYMPHOMA
  3. ALLOPURINOL [Suspect]
     Indication: NON-HODGKIN'S LYMPHOMA
  4. FLUCONAZOLE [Suspect]
     Indication: NON-HODGKIN'S LYMPHOMA

REACTIONS (8)
  - ACINETOBACTER INFECTION [None]
  - BACTERIAL INFECTION [None]
  - BLOOD CULTURE POSITIVE [None]
  - CENTRAL LINE INFECTION [None]
  - CULTURE WOUND POSITIVE [None]
  - PYREXIA [None]
  - STAPHYLOCOCCAL INFECTION [None]
  - TOXIC EPIDERMAL NECROLYSIS [None]
